FAERS Safety Report 5553616-3 (Version None)
Quarter: 2007Q4

REPORT INFORMATION
  Report Type: 
  Country: None (occurrence: None)
  Receive Date: 20071213
  Receipt Date: 20071203
  Transmission Date: 20080405
  Serious: Yes (Other)
  Sender: FDA-Public Use
  Company Number: PHHY2007KR00766

PATIENT
  Age: 64 Year
  Sex: Female

DRUGS (1)
  1. VALSARTAN [Suspect]
     Indication: HYPERTENSION
     Dosage: 80 MG, UNK
     Route: 048
     Dates: start: 20041011, end: 20050131

REACTIONS (2)
  - COUGH [None]
  - THROAT IRRITATION [None]
